FAERS Safety Report 7730877-3 (Version None)
Quarter: 2011Q3

REPORT INFORMATION
  Report Type: 
  Country: None (occurrence: None)
  Receive Date: 20110906
  Receipt Date: 20110830
  Transmission Date: 20111222
  Serious: Yes (Hospitalization)
  Sender: FDA-Public Use
  Company Number: JP-PFIZER INC-2011201408

PATIENT
  Age: 94 Year
  Sex: Male
  Weight: 53.5 kg

DRUGS (8)
  1. CRESTOR [Concomitant]
     Dosage: UNK
     Route: 048
     Dates: end: 20110527
  2. OMEPRAZOLE [Concomitant]
     Dosage: UNK
     Route: 048
     Dates: end: 20110527
  3. DEPAS [Concomitant]
     Dosage: UNK
     Route: 048
     Dates: end: 20110527
  4. ECARD LD [Concomitant]
     Indication: HYPERTENSION
     Dosage: UNK
     Route: 048
     Dates: end: 20110527
  5. ASPIRIN [Concomitant]
     Dosage: UNK
     Route: 048
     Dates: end: 20110527
  6. LASIX [Concomitant]
     Indication: HYPERTENSION
     Dosage: 40 MG DAILY
     Route: 048
     Dates: end: 20110527
  7. AMLODIPINE BESYLATE [Suspect]
     Indication: HYPERTENSION
     Dosage: 10 MG, 1X/DAY
     Dates: start: 20110305, end: 20110527
  8. TORASEMIDE [Concomitant]
     Dosage: UNK
     Route: 048
     Dates: end: 20110527

REACTIONS (1)
  - EMPHYSEMA [None]
